FAERS Safety Report 11440084 (Version 1)
Quarter: 2015Q3

REPORT INFORMATION
  Report Type: Spontaneous
  Country: US (occurrence: None)
  Receive Date: 20150831
  Receipt Date: 20150831
  Transmission Date: 20151125
  Serious: Yes (Other)
  Sender: FDA-Public Use
  Company Number: None

PATIENT
  Age: 33 Year
  Sex: Female
  Weight: 49.9 kg

DRUGS (8)
  1. DUREZOL [Concomitant]
     Active Substance: DIFLUPREDNATE
  2. LEVOFLOXACIN. [Suspect]
     Active Substance: LEVOFLOXACIN
     Indication: INFECTION
     Dosage: 500 MG, 5 PILLS ONCE DAILY TAKEN BY MOUTH
     Route: 048
     Dates: start: 20150711, end: 20150715
  3. ERYTHROMYCIN. [Concomitant]
     Active Substance: ERYTHROMYCIN
  4. PROTOPIC [Concomitant]
     Active Substance: TACROLIMUS
  5. MULTI-VITAMIN [Concomitant]
     Active Substance: .ALPHA.-TOCOPHEROL ACETATE, DL-\ASCORBIC ACID\CYANOCOBALAMIN\FLUORIDE ION\FOLIC ACID\NIACIN\PYRIDOXINE\RIBOFLAVIN\THIAMINE\VITAMIN A\VITAMIN D
  6. CALCIUM [Concomitant]
     Active Substance: CALCIUM
  7. PRESERVATIVE FREE TEARS [Concomitant]
  8. VITAMIN D [Concomitant]
     Active Substance: CHOLECALCIFEROL

REACTIONS (4)
  - Nervousness [None]
  - Anxiety [None]
  - Panic attack [None]
  - Middle insomnia [None]

NARRATIVE: CASE EVENT DATE: 20150711
